FAERS Safety Report 9846390 (Version 2)
Quarter: 2014Q1

REPORT INFORMATION
  Report Type: Report from Study
  Country: IT (occurrence: IT)
  Receive Date: 20140127
  Receipt Date: 20140212
  Transmission Date: 20141002
  Serious: Yes (Death)
  Sender: FDA-Public Use
  Company Number: IT-CELGENEUS-083-21660-14013294

PATIENT
  Age: 71 Year
  Sex: Female
  Weight: 88.5 kg

DRUGS (6)
  1. ABRAXANE [Suspect]
     Indication: BREAST CANCER
     Dosage: 248 MILLIGRAM
     Route: 041
     Dates: start: 20131105
  2. NORVASC [Concomitant]
     Indication: HYPERTENSION
     Route: 065
     Dates: start: 2003
  3. EFFEXOR [Concomitant]
     Indication: DEPRESSION
     Route: 065
  4. MUTABON [Concomitant]
     Indication: DEPRESSION
     Route: 065
  5. OMEPRAZOLE [Concomitant]
     Indication: GASTRITIS
     Route: 065
     Dates: start: 20131105
  6. ONDANSETRON [Concomitant]
     Indication: PREMEDICATION
     Route: 065
     Dates: start: 20131105

REACTIONS (1)
  - Cardiac arrest [Fatal]
